FAERS Safety Report 14126053 (Version 1)
Quarter: 2017Q4

REPORT INFORMATION
  Report Type: Report from Study
  Country: JP (occurrence: JP)
  Receive Date: 20171025
  Receipt Date: 20171025
  Transmission Date: 20180321
  Serious: Yes (Other)
  Sender: FDA-Public Use
  Company Number: JP-TEVA-818720ISR

PATIENT
  Age: 32 Year
  Sex: Female

DRUGS (1)
  1. LUTEUM VAGINAL SUPPOSITORY 400MG [Suspect]
     Active Substance: PROGESTERONE
     Indication: PROGESTIN REPLACEMENT THERAPY
     Route: 067
     Dates: start: 20160901

REACTIONS (2)
  - Delayed delivery [Unknown]
  - Gestational diabetes [Unknown]
